FAERS Safety Report 4458318-2 (Version None)
Quarter: 2004Q3

REPORT INFORMATION
  Report Type: 
  Country: None (occurrence: None)
  Receive Date: 20040917
  Receipt Date: 20040406
  Transmission Date: 20050211
  Serious: Yes (Other)
  Sender: FDA-Public Use
  Company Number: US-JNJFOC-20040202958

PATIENT
  Age: 40 Year
  Sex: Female
  Weight: 64.4108 kg

DRUGS (7)
  1. TOPAMAX [Suspect]
     Indication: MIGRAINE
     Dosage: 100 MG, 2 IN 1 DAY, ORAL
     Route: 048
     Dates: start: 19990101
  2. COUMADIN [Concomitant]
  3. SECTRAL [Concomitant]
  4. SYNTHROID [Concomitant]
  5. DURAGESIC [Concomitant]
  6. LORTAB [Concomitant]
  7. BELLERGAL (BEALLASPON RETARD) [Concomitant]

REACTIONS (1)
  - THROMBOSIS [None]
